FAERS Safety Report 11269857 (Version 3)
Quarter: 2015Q3

REPORT INFORMATION
  Report Type: Spontaneous
  Country: CA (occurrence: CA)
  Receive Date: 20150714
  Receipt Date: 20150804
  Transmission Date: 20151125
  Serious: Yes (Other)
  Sender: FDA-Public Use
  Company Number: CA-ROCHE-1607931

PATIENT
  Age: 67 Year
  Sex: Female

DRUGS (12)
  1. XOLAIR [Suspect]
     Active Substance: OMALIZUMAB
     Route: 058
     Dates: start: 20130619
  2. XOLAIR [Suspect]
     Active Substance: OMALIZUMAB
     Route: 058
     Dates: start: 20150122
  3. SALBUTAMOL [Concomitant]
     Active Substance: ALBUTEROL
  4. XOLAIR [Suspect]
     Active Substance: OMALIZUMAB
     Route: 058
     Dates: start: 20130710
  5. XOLAIR [Suspect]
     Active Substance: OMALIZUMAB
     Route: 058
     Dates: start: 20150401
  6. XOLAIR [Suspect]
     Active Substance: OMALIZUMAB
     Indication: ASTHMA
     Route: 058
     Dates: start: 20120309
  7. SYMBICORT [Concomitant]
     Active Substance: BUDESONIDE\FORMOTEROL FUMARATE DIHYDRATE
  8. XOLAIR [Suspect]
     Active Substance: OMALIZUMAB
     Indication: RHINITIS
     Route: 058
     Dates: start: 20130426
  9. XOLAIR [Suspect]
     Active Substance: OMALIZUMAB
     Route: 058
     Dates: start: 201402, end: 201402
  10. XOLAIR [Suspect]
     Active Substance: OMALIZUMAB
     Route: 058
     Dates: start: 20130823
  11. XOLAIR [Suspect]
     Active Substance: OMALIZUMAB
     Route: 058
     Dates: start: 20141008
  12. XOLAIR [Suspect]
     Active Substance: OMALIZUMAB
     Route: 058

REACTIONS (24)
  - Obstructive airways disorder [Unknown]
  - Aphthous ulcer [Recovered/Resolved]
  - Respiratory tract irritation [Unknown]
  - Pruritus [Unknown]
  - General physical health deterioration [Unknown]
  - Sneezing [Unknown]
  - Pain [Unknown]
  - Asthma [Unknown]
  - Dyspnoea [Unknown]
  - Peak expiratory flow rate decreased [Unknown]
  - Upper respiratory tract congestion [Unknown]
  - Chest discomfort [Unknown]
  - Lung infection [Unknown]
  - Lymphadenopathy [Recovered/Resolved]
  - Cheilitis [Unknown]
  - Stomatitis [Unknown]
  - Stress [Unknown]
  - Nasal congestion [Recovering/Resolving]
  - Asthenia [Unknown]
  - Headache [Unknown]
  - Decreased immune responsiveness [Unknown]
  - Malaise [Unknown]
  - Sinusitis [Recovering/Resolving]
  - Nasopharyngitis [Unknown]

NARRATIVE: CASE EVENT DATE: 201301
